FAERS Safety Report 9344348 (Version 1)
Quarter: 2013Q2

REPORT INFORMATION
  Report Type: Spontaneous
  Country: JP (occurrence: JP)
  Receive Date: 20130612
  Receipt Date: 20130612
  Transmission Date: 20140414
  Serious: Yes (Hospitalization, Other)
  Sender: FDA-Public Use
  Company Number: JP-ASTELLAS-2013JP006494

PATIENT
  Age: 37 Year
  Sex: Female

DRUGS (5)
  1. PROGRAF [Suspect]
     Indication: ACUTE GRAFT VERSUS HOST DISEASE
     Route: 065
  2. PREDNISOLON /00016201/ [Suspect]
     Indication: ACUTE GRAFT VERSUS HOST DISEASE
     Dosage: 2 MG/KG, UNKNOWN/D
     Route: 065
  3. PREDNISOLON /00016201/ [Suspect]
     Indication: IMMUNOSUPPRESSANT DRUG THERAPY
     Route: 065
  4. CELLCEPT /01275102/ [Suspect]
     Indication: GRAFT VERSUS HOST DISEASE
     Route: 048
  5. SULFAMETHOXAZOLE AND TRIMETHOPRIM [Concomitant]
     Indication: NOCARDIOSIS
     Route: 065

REACTIONS (6)
  - Drug ineffective [Unknown]
  - Graft versus host disease [Recovering/Resolving]
  - Graft versus host disease [Unknown]
  - Nocardiosis [Recovering/Resolving]
  - Pneumonia bacterial [Recovering/Resolving]
  - Bronchopulmonary aspergillosis [Recovering/Resolving]
